FAERS Safety Report 18164902 (Version 2)
Quarter: 2020Q3

REPORT INFORMATION
  Report Type: Spontaneous
  Country: DE (occurrence: DE)
  Receive Date: 20200818
  Receipt Date: 20200914
  Transmission Date: 20201103
  Serious: Yes (Hospitalization, Other)
  Sender: FDA-Public Use
  Company Number: DE-MYLANLABS-2020M1071460

PATIENT
  Age: 55 Year
  Sex: Male

DRUGS (7)
  1. SALBUTAMOL [Concomitant]
     Active Substance: ALBUTEROL
     Dosage: UNK NK MG, NK
  2. ALLOPURINOL. [Concomitant]
     Active Substance: ALLOPURINOL
     Dosage: UNK NK MG, 1X
  3. SORMODREN [Concomitant]
     Active Substance: BORNAPRINE HYDROCHLORIDE
     Dosage: UNK NK MG, NK
  4. HYDROCHLOROTHIAZIDE W/RAMIPRIL [Concomitant]
     Active Substance: HYDROCHLOROTHIAZIDE\RAMIPRIL
     Dosage: UNK UNK, BID 25/5 MG, 1?0?1?0
  5. THEOPHYLLINE [Interacting]
     Active Substance: THEOPHYLLINE ANHYDROUS
     Indication: PRODUCT USED FOR UNKNOWN INDICATION
     Dosage: UNK, QD NK MG, 1?0?0?0
  6. VERAPAMIL [Suspect]
     Active Substance: VERAPAMIL HYDROCHLORIDE
     Indication: PRODUCT USED FOR UNKNOWN INDICATION
     Dosage: 240 MG, 1?0?0.5?0
  7. SYMBICORT [Concomitant]
     Active Substance: BUDESONIDE\FORMOTEROL FUMARATE DIHYDRATE
     Dosage: UNK NK MG, NK

REACTIONS (6)
  - Angina pectoris [Unknown]
  - Arrhythmia [Unknown]
  - Labelled drug-drug interaction medication error [Unknown]
  - Electrocardiogram abnormal [Unknown]
  - Oedema peripheral [Unknown]
  - Dyspnoea [Unknown]
